FAERS Safety Report 6273067-6 (Version None)
Quarter: 2009Q3

REPORT INFORMATION
  Report Type: 
  Country: None (occurrence: None)
  Receive Date: 20090715
  Receipt Date: 20090715
  Transmission Date: 20100115
  Serious: Yes (Hospitalization)
  Sender: FDA-Public Use
  Company Number: None

PATIENT
  Sex: Male
  Weight: 74 kg

DRUGS (9)
  1. CYCLOPHOSPHAMIDE [Suspect]
     Dosage: 2000 MG
  2. CYTARABINE [Suspect]
     Dosage: 40 MG
  3. DEXAMETHASONE [Concomitant]
     Dosage: 100 MG
  4. DOXORUBICIN HCL [Suspect]
     Dosage: 100 MG
  5. G-CSF (FILGRASTIM, AMGEN) [Suspect]
     Dosage: 3240 MCG
  6. LEUCOVORIN CALCIUM [Suspect]
     Dosage: 80 MG
  7. METHOTREXATE [Suspect]
     Dosage: 3065 MG
  8. RITUXIMAB (MOAB C2B8 ANTI CD20, CHIMERIC) [Suspect]
     Dosage: 750 MG
  9. VINCRISTINE SULFATE [Suspect]
     Dosage: 2 MG

REACTIONS (13)
  - ATELECTASIS [None]
  - DRUG ERUPTION [None]
  - DYSPHAGIA [None]
  - EPISTAXIS [None]
  - FATIGUE [None]
  - HEADACHE [None]
  - INADEQUATE ANALGESIA [None]
  - MUCOSAL INFLAMMATION [None]
  - NAUSEA [None]
  - OESOPHAGITIS [None]
  - PAIN [None]
  - PYREXIA [None]
  - VOMITING [None]
